FAERS Safety Report 5752472-8 (Version None)
Quarter: 2008Q2

REPORT INFORMATION
  Report Type: 
  Country: None (occurrence: None)
  Receive Date: 20080529
  Receipt Date: 20080428
  Transmission Date: 20081010
  Serious: No
  Sender: FDA-Public Use
  Company Number: US-BAYER-200811680BCC

PATIENT
  Age: 85 Year
  Sex: Female
  Weight: 68 kg

DRUGS (4)
  1. ALEVE (CAPLET) [Suspect]
     Indication: PAIN IN EXTREMITY
     Dosage: TOTAL DAILY DOSE: 220 MG  UNIT DOSE: 220 MG
     Route: 048
     Dates: start: 20080401, end: 20080401
  2. PERCOCET [Concomitant]
  3. LYRICA [Concomitant]
  4. CARDIZEM [Concomitant]

REACTIONS (3)
  - ABASIA [None]
  - DIZZINESS [None]
  - FEELING ABNORMAL [None]
